FAERS Safety Report 25142636 (Version 1)
Quarter: 2025Q1

REPORT INFORMATION
  Report Type: Spontaneous
  Country: BR (occurrence: BR)
  Receive Date: 20250331
  Receipt Date: 20250331
  Transmission Date: 20250409
  Serious: Yes (Life-Threatening, Other)
  Sender: ALEXION PHARMACEUTICALS
  Company Number: BR-AstraZeneca-CH-00835873A

PATIENT
  Age: 64 Year
  Weight: 62.4 kg

DRUGS (10)
  1. LOKELMA [Suspect]
     Active Substance: SODIUM ZIRCONIUM CYCLOSILICATE
     Indication: Hyperkalaemia
  2. ASPIRIN [Concomitant]
     Active Substance: ASPIRIN
  3. AMLODIPINE [Concomitant]
     Active Substance: AMLODIPINE BESYLATE
  4. SIMVASTATIN [Concomitant]
     Active Substance: SIMVASTATIN
  5. ENALAPRIL [Concomitant]
     Active Substance: ENALAPRIL
  6. LEVOTHYROXINE [Concomitant]
     Active Substance: LEVOTHYROXINE
  7. AMIODARONE [Concomitant]
     Active Substance: AMIODARONE
  8. WARFARIN [Concomitant]
     Active Substance: WARFARIN
  9. HYDRALAZINE [Concomitant]
     Active Substance: HYDRALAZINE HYDROCHLORIDE
  10. ISOSORBIDE [Concomitant]
     Active Substance: ISOSORBIDE

REACTIONS (5)
  - Acute myocardial infarction [Recovered/Resolved]
  - Back pain [Unknown]
  - Pain [Unknown]
  - Arrhythmia supraventricular [Unknown]
  - Bundle branch block right [Unknown]
